FAERS Safety Report 8989994 (Version 3)
Quarter: 2013Q1

REPORT INFORMATION
  Report Type: Report from Study
  Country: AU (occurrence: AU)
  Receive Date: 20121228
  Receipt Date: 20130220
  Transmission Date: 20140127
  Serious: Yes (Life-Threatening, Hospitalization)
  Sender: FDA-Public Use
  Company Number: AU-EISAI INC-E2007-00616-CLI-AU

PATIENT
  Age: 58 Year
  Sex: Female
  Weight: 75 kg

DRUGS (20)
  1. E2007 (PERAMPANEL) [Suspect]
     Indication: PARTIAL SEIZURES
     Dosage: DOUBLE BLIND CONVERSION PHASE
     Route: 048
     Dates: start: 20090806, end: 20091216
  2. E2007 (PERAMPANEL) [Suspect]
     Dosage: MAINTENANCE PHASE
     Route: 048
     Dates: start: 20091217, end: 20120513
  3. LEVETIRACETAM [Concomitant]
     Indication: EPILEPSY
     Route: 048
     Dates: start: 2002, end: 20120528
  4. CARBAMAZEPINE [Concomitant]
     Indication: EPILEPSY
     Dosage: 400 MG IN THE MORNING; 600 MG AT NIGHT
     Route: 048
     Dates: start: 1980
  5. CLONAZEPAM [Concomitant]
     Indication: EPILEPSY
     Route: 048
     Dates: start: 1980
  6. PARACETAMOL [Concomitant]
     Indication: MIGRAINE
     Route: 048
     Dates: start: 1980
  7. CODIENE [Concomitant]
     Indication: MIGRAINE
     Route: 048
     Dates: start: 1980
  8. ATORVASTATIN [Concomitant]
     Indication: HYPERCHOLESTEROLAEMIA
     Route: 048
     Dates: start: 2003
  9. FOLIC ACID [Concomitant]
     Indication: PROPHYLAXIS
     Route: 048
     Dates: start: 2012
  10. XALATAN [Concomitant]
     Indication: GLAUCOMA
     Dosage: 1 DROP IN BOTH EYES AT NIGHT
     Route: 047
     Dates: start: 2007
  11. PAROXETINE [Concomitant]
     Indication: DEPRESSION
     Route: 048
     Dates: start: 2004
  12. IRBESARTAN [Concomitant]
     Indication: HYPERTENSION
     Route: 048
  13. IMIGRAN [Concomitant]
     Indication: MIGRAINE
     Route: 048
     Dates: start: 1980
  14. TIMOLOL [Concomitant]
     Indication: GLAUCOMA
     Dosage: LEFT EYE - 1 DROP
     Route: 047
     Dates: start: 2007
  15. LACTULOSE [Concomitant]
     Indication: PROPHYLAXIS
     Dosage: 20 MILLILITERS
     Route: 048
     Dates: start: 20120508
  16. MAXALON [Concomitant]
     Indication: PROPHYLAXIS
     Route: 030
     Dates: start: 20120508
  17. PROPANOLOL [Concomitant]
     Indication: HYPERTENSION
     Route: 048
  18. CALTRATE [Concomitant]
     Indication: PROPHYLAXIS
     Route: 048
     Dates: start: 2012
  19. PROTOS [Concomitant]
     Indication: PROPHYLAXIS
     Route: 048
     Dates: start: 2012
  20. VITAMIN D [Concomitant]
     Indication: PROPHYLAXIS
     Route: 058
     Dates: start: 2012

REACTIONS (6)
  - Acute psychosis [Recovered/Resolved with Sequelae]
  - Aggression [Recovered/Resolved]
  - Urinary tract infection [Recovered/Resolved]
  - Pulmonary embolism [Recovered/Resolved]
  - Deep vein thrombosis [Recovered/Resolved]
  - Forearm fracture [Recovered/Resolved]
